FAERS Safety Report 20599191 (Version 1)
Quarter: 2022Q1

REPORT INFORMATION
  Report Type: Spontaneous
  Country: US (occurrence: US)
  Receive Date: 20220315
  Receipt Date: 20220315
  Transmission Date: 20220424
  Serious: No
  Sender: FDA-Public Use
  Company Number: US-SA-SAC20220311000647

PATIENT
  Sex: Male

DRUGS (9)
  1. FABRAZYME [Suspect]
     Active Substance: AGALSIDASE BETA
     Indication: Fabry^s disease
     Dosage: 70 MG, QOW
     Route: 042
     Dates: start: 20200109
  2. DIPHENHYDRAMINE [Concomitant]
     Active Substance: DIPHENHYDRAMINE
  3. SODIUM CHLORIDE [Concomitant]
     Active Substance: SODIUM CHLORIDE
  4. EPINEPHRINE [Concomitant]
     Active Substance: EPINEPHRINE
  5. ASPIRIN MAX [Concomitant]
  6. RANITIDINE [Concomitant]
     Active Substance: RANITIDINE
  7. FERROCITE [Concomitant]
     Active Substance: FERROUS FUMARATE
  8. LISINOPRIL [Concomitant]
     Active Substance: LISINOPRIL
  9. STERILE WATER [Concomitant]
     Active Substance: WATER

REACTIONS (3)
  - Pain [Unknown]
  - Infusion related reaction [Unknown]
  - Pain in extremity [Unknown]
